FAERS Safety Report 19103236 (Version 1)
Quarter: 2021Q2

REPORT INFORMATION
  Report Type: Spontaneous
  Country: US (occurrence: US)
  Receive Date: 20210407
  Receipt Date: 20210407
  Transmission Date: 20210717
  Serious: No
  Sender: FDA-Public Use
  Company Number: US-MYLANLABS-2021M1019032

PATIENT
  Sex: Female

DRUGS (1)
  1. CARBIDOPA AND LEVODOPA EXTENDED?RELEASE TABLETS [Suspect]
     Active Substance: CARBIDOPA\LEVODOPA
     Indication: PARKINSON^S DISEASE
     Dosage: UNK

REACTIONS (3)
  - Product dose omission in error [Unknown]
  - Tremor [Unknown]
  - Product packaging issue [Unknown]
